FAERS Safety Report 9959765 (Version 1)
Quarter: 2014Q1

REPORT INFORMATION
  Report Type: Spontaneous
  Country: CN (occurrence: None)
  Receive Date: 20140227
  Receipt Date: 20140227
  Transmission Date: 20141002
  Serious: Yes (Other)
  Sender: FDA-Public Use
  Company Number: 2014P1001607

PATIENT
  Sex: 0

DRUGS (1)
  1. DIGOXIN [Suspect]

REACTIONS (2)
  - Overdose [None]
  - Aneurysm ruptured [None]
